FAERS Safety Report 7388204-X (Version None)
Quarter: 2011Q2

REPORT INFORMATION
  Report Type: 
  Country: None (occurrence: None)
  Receive Date: 20110401
  Receipt Date: 20110322
  Transmission Date: 20111010
  Serious: Yes (Hospitalization)
  Sender: FDA-Public Use
  Company Number: FR-EISAI INC-E3810-04561-SPO-FR

PATIENT
  Sex: Female

DRUGS (6)
  1. LOVENOX [Concomitant]
     Dates: start: 20110128, end: 20110202
  2. PARIET (RABEPRAZOLE) [Suspect]
     Route: 048
     Dates: start: 20110127, end: 20110130
  3. CEFTRIAXONE DISODIUM HEMI HEPTAHYDRATE [Suspect]
     Route: 048
     Dates: start: 20110126, end: 20110130
  4. OFLOXACIN [Suspect]
     Route: 048
     Dates: start: 20110126, end: 20110130
  5. CONTRAMAL [Suspect]
     Route: 048
     Dates: start: 20110127, end: 20110131
  6. DAFALGAN [Concomitant]
     Route: 048
     Dates: start: 20110127

REACTIONS (1)
  - CHOLESTASIS [None]
